FAERS Safety Report 9198963 (Version 1)
Quarter: 2013Q1

REPORT INFORMATION
  Report Type: Other
  Country: CA (occurrence: CA)
  Receive Date: 20130329
  Receipt Date: 20130329
  Transmission Date: 20140127
  Serious: Yes (Hospitalization)
  Sender: FDA-Public Use
  Company Number: CA-BRISTOL-MYERS SQUIBB COMPANY-18696708

PATIENT
  Age: 50 Year
  Sex: Female

DRUGS (3)
  1. ARIPIPRAZOLE [Suspect]
     Indication: SCHIZOPHRENIA
     Dosage: INTIAL DOSE-2MG AND INCREASED TO 20MG OVER 3 WEEKS
  2. FLUOXETINE [Suspect]
     Indication: SCHIZOPHRENIA
     Dosage: DOSE INCREASED TO 60MG/D AND THEN TO 40MG/D
  3. OLANZAPINE [Suspect]
     Indication: SCHIZOPHRENIA
     Dosage: INTIAL DOSE-5MG AT BEDTIME FOR 4 DAYS?DOSE INCREASED TO 10MG,30MG ON UNK DATE

REACTIONS (1)
  - Mania [Recovered/Resolved]
